FAERS Safety Report 9531311 (Version 1)
Quarter: 2013Q3

REPORT INFORMATION
  Report Type: Spontaneous
  Country: FR (occurrence: FR)
  Receive Date: 20130918
  Receipt Date: 20130918
  Transmission Date: 20140515
  Serious: Yes (Hospitalization)
  Sender: FDA-Public Use
  Company Number: FR-JNJFOC-20130904705

PATIENT
  Age: 90 Year
  Sex: Female

DRUGS (11)
  1. HALDOL [Suspect]
     Indication: ABNORMAL BEHAVIOUR
     Route: 048
     Dates: start: 201207
  2. HALDOL [Suspect]
     Indication: ABNORMAL BEHAVIOUR
     Route: 048
     Dates: end: 20120804
  3. LOXAPAC [Suspect]
     Indication: ABNORMAL BEHAVIOUR
     Dosage: 22 DROPS ONCE A DAY
     Route: 048
     Dates: start: 201207, end: 20120724
  4. SOLUPRED [Suspect]
     Indication: ABNORMAL BEHAVIOUR
     Route: 048
     Dates: start: 20120719, end: 20120724
  5. RISPERDAL [Concomitant]
     Indication: DEMENTIA
     Route: 065
  6. SEROPLEX [Concomitant]
     Route: 065
  7. SPECIAFOLDINE [Concomitant]
     Route: 065
  8. IMOVANE [Concomitant]
     Route: 065
  9. FORLAX [Concomitant]
     Route: 065
  10. LOVENOX [Concomitant]
     Route: 065
     Dates: start: 201206
  11. TAREG [Concomitant]
     Route: 065

REACTIONS (3)
  - Abnormal behaviour [Unknown]
  - Aggression [Unknown]
  - Agitation [Recovered/Resolved]
